FAERS Safety Report 8094150-9 (Version None)
Quarter: 2012Q1

REPORT INFORMATION
  Report Type: 
  Country: None (occurrence: None)
  Receive Date: 20120130
  Receipt Date: 20120130
  Transmission Date: 20120608
  Serious: Yes (Other)
  Sender: FDA-Public Use
  Company Number: None

PATIENT
  Age: 53 Year
  Sex: Male

DRUGS (1)
  1. ZELBORAF [Suspect]
     Dosage: 960MG
     Route: 048
     Dates: start: 20110830, end: 20120125

REACTIONS (2)
  - BONE NEOPLASM [None]
  - MALIGNANT MELANOMA [None]
